FAERS Safety Report 4952541-6 (Version None)
Quarter: 2006Q1

REPORT INFORMATION
  Report Type: 
  Country: None (occurrence: None)
  Receive Date: 20060323
  Receipt Date: 20050315
  Transmission Date: 20060701
  Serious: Yes (Disabling)
  Sender: FDA-Public Use
  Company Number: US-MERCK-0503USA03257

PATIENT
  Age: 62 Year
  Sex: Female
  Weight: 91 kg

DRUGS (2)
  1. VIOXX [Suspect]
     Indication: ARTHRALGIA
     Route: 048
     Dates: start: 20031001, end: 20040601
  2. VIOXX [Suspect]
     Indication: OSTEOARTHRITIS
     Route: 048
     Dates: start: 20031001, end: 20040601

REACTIONS (10)
  - CORONARY ARTERY DISEASE [None]
  - DEPRESSION [None]
  - DYSPEPSIA [None]
  - GASTRITIS [None]
  - INGROWING NAIL [None]
  - INSOMNIA [None]
  - INTERMITTENT CLAUDICATION [None]
  - OESOPHAGEAL DISORDER [None]
  - THROMBOSIS [None]
  - TOE AMPUTATION [None]
